FAERS Safety Report 4948405-4 (Version None)
Quarter: 2006Q1

REPORT INFORMATION
  Report Type: 
  Country: None (occurrence: None)
  Receive Date: 20060320
  Receipt Date: 20060316
  Transmission Date: 20060701
  Serious: Yes (Death)
  Sender: FDA-Public Use
  Company Number: GB-BOEHRINGER INGELHEIM PHARMACEUTICALS, INC.-2006-UK-01278UK

PATIENT
  Sex: Male

DRUGS (4)
  1. COMBIVENT [Suspect]
     Dosage: 2.5 INHALER SOLUTION
  2. ASPIRIN [Concomitant]
  3. VITAMIN B COMPLEX CAP [Concomitant]
  4. SERETIDE [Concomitant]

REACTIONS (1)
  - CHRONIC OBSTRUCTIVE PULMONARY DISEASE [None]
